FAERS Safety Report 24258672 (Version 2)
Quarter: 2024Q3

REPORT INFORMATION
  Report Type: Spontaneous
  Country: GB (occurrence: GB)
  Receive Date: 20240828
  Receipt Date: 20240921
  Transmission Date: 20241016
  Serious: Yes (Other)
  Sender: GLENMARK
  Company Number: GB-GLENMARK PHARMACEUTICALS-2024GMK092845

PATIENT

DRUGS (3)
  1. NEBIVOLOL [Suspect]
     Active Substance: NEBIVOLOL
     Indication: Cardiac disorder
     Dosage: 1.25 MILLIGRAM, QD (IN THE EVENING)
     Route: 048
  2. NEBIVOLOL [Suspect]
     Active Substance: NEBIVOLOL
     Indication: Hypertension
  3. AMLODIPINE [Concomitant]
     Active Substance: AMLODIPINE BESYLATE
     Indication: Hypertension
     Dosage: UNK
     Route: 065

REACTIONS (8)
  - Neuropathy peripheral [Unknown]
  - Nervous system disorder [Unknown]
  - Condition aggravated [Unknown]
  - Ill-defined disorder [Unknown]
  - Amnesia [Unknown]
  - Intentional dose omission [Unknown]
  - Product use issue [Unknown]
  - Product availability issue [Unknown]
